FAERS Safety Report 9458938 (Version 3)
Quarter: 2013Q4

REPORT INFORMATION
  Report Type: Report from Study
  Country: DE (occurrence: DE)
  Receive Date: 20130814
  Receipt Date: 20131219
  Transmission Date: 20140711
  Serious: Yes (Hospitalization)
  Sender: FDA-Public Use
  Company Number: DE-ROCHE-1261781

PATIENT
  Age: 66 Year
  Sex: Female
  Weight: 62 kg

DRUGS (3)
  1. BEVACIZUMAB [Suspect]
     Indication: OVARIAN CANCER
     Dosage: LAST DOSE PRIOR TO FIRST EPISODE OF  SAE ON 07/AUG/2013. LAST DOSE PRIOR TO SECOND EPISODE OF POOR G
     Route: 042
     Dates: start: 20130605
  2. CARBOPLATIN [Suspect]
     Indication: OVARIAN CANCER
     Dosage: LAST DOSE PRIOR TO SAE ON 07/AUG/2013, LAST DOSE PRIOR TO SECOND EPISODE OF POOR GENERAL CONDITION O
     Route: 042
     Dates: start: 20130605
  3. PACLITAXEL [Suspect]
     Indication: OVARIAN CANCER
     Dosage: LAST DOSE PRIOR TO SAE ON 07/AUG/2013. LAST DOSE PRIOR TO SECOND EPISODE OF POOR GENERAL CONDITION O
     Route: 042
     Dates: start: 20130605

REACTIONS (2)
  - General physical health deterioration [Recovered/Resolved]
  - General physical health deterioration [Recovered/Resolved]
